FAERS Safety Report 8340872-1 (Version None)
Quarter: 2012Q2

REPORT INFORMATION
  Report Type: 
  Country: None (occurrence: None)
  Receive Date: 20120507
  Receipt Date: 20120423
  Transmission Date: 20120825
  Serious: Yes (Hospitalization)
  Sender: FDA-Public Use
  Company Number: JP-ROCHE-1061834

PATIENT
  Age: 58 Year
  Sex: Male

DRUGS (1)
  1. AVASTIN [Suspect]
     Indication: COLON CANCER
     Route: 041
     Dates: start: 20080620, end: 20080919

REACTIONS (6)
  - IMPAIRED HEALING [None]
  - CATHETER SITE PAIN [None]
  - CATHETER SITE OEDEMA [None]
  - WOUND DEHISCENCE [None]
  - CATHETER SITE ERYTHEMA [None]
  - CATHETER SITE PRURITUS [None]
